FAERS Safety Report 6833526-1 (Version None)
Quarter: 2010Q3

REPORT INFORMATION
  Report Type: 
  Country: None (occurrence: None)
  Receive Date: 20100712
  Receipt Date: 20070328
  Transmission Date: 20110219
  Serious: No
  Sender: FDA-Public Use
  Company Number: US-PFIZER INC-2007026170

PATIENT
  Sex: Female
  Weight: 68.04 kg

DRUGS (6)
  1. CHANTIX [Suspect]
     Indication: SMOKING CESSATION THERAPY
     Dates: start: 20070319
  2. AVAPRO [Concomitant]
     Indication: HYPERTENSION
  3. SERTRALINE HCL [Concomitant]
  4. CLONAZEPAM [Concomitant]
  5. ACETYLSALICYLIC ACID [Concomitant]
  6. COMBIVENT [Concomitant]

REACTIONS (1)
  - NAUSEA [None]
